FAERS Safety Report 8091153-5 (Version None)
Quarter: 2012Q1

REPORT INFORMATION
  Report Type: 
  Country: None (occurrence: None)
  Receive Date: 20120129
  Receipt Date: 20110919
  Transmission Date: 20120608
  Serious: Yes (Other)
  Sender: FDA-Public Use
  Company Number: US-ABBOTT-11P-163-0856561-00

PATIENT
  Sex: Male
  Weight: 90.8 kg

DRUGS (7)
  1. TOPROL-XL [Concomitant]
     Indication: HYPERTENSION
  2. ASPIRIN [Concomitant]
     Indication: PRODUCT USED FOR UNKNOWN INDICATION
  3. MORPHINE [Concomitant]
     Indication: PAIN
  4. MORPHINE [Concomitant]
     Indication: PAIN
  5. IMURAN [Concomitant]
     Indication: CROHN'S DISEASE
  6. HUMIRA [Suspect]
     Indication: CROHN'S DISEASE
     Route: 058
     Dates: start: 20091022
  7. ALENDRONATE SODIUM [Concomitant]
     Indication: OSTEOPOROSIS

REACTIONS (6)
  - ACNE [None]
  - SKIN IRRITATION [None]
  - DEPRESSION [None]
  - POSTOPERATIVE WOUND INFECTION [None]
  - INJECTION SITE PAIN [None]
  - NEEDLE ISSUE [None]
